FAERS Safety Report 10165792 (Version 2)
Quarter: 2014Q2

REPORT INFORMATION
  Report Type: Spontaneous
  Country: US (occurrence: US)
  Receive Date: 20140510
  Receipt Date: 20140510
  Transmission Date: 20141212
  Serious: No
  Sender: FDA-Public Use
  Company Number: US201004001375

PATIENT
  Sex: 0

DRUGS (4)
  1. BYETTA PEN DISPOSABLE [Suspect]
     Route: 058
     Dates: start: 2008
  2. BYDUREON [Suspect]
     Dates: start: 201311
  3. EXENATIDE UNK STRENGTH PEN, DISPOSABLE DEVICE [Concomitant]
  4. METFORMIN [Concomitant]

REACTIONS (3)
  - Weight decreased [Unknown]
  - Product quality issue [Unknown]
  - Underdose [Unknown]
